FAERS Safety Report 7765511-X (Version None)
Quarter: 2011Q3

REPORT INFORMATION
  Report Type: 
  Country: None (occurrence: None)
  Receive Date: 20110921
  Receipt Date: 20110915
  Transmission Date: 20111222
  Serious: Yes (Hospitalization)
  Sender: FDA-Public Use
  Company Number: KR-GENZYME-FABR-1002140

PATIENT
  Age: 27 Year
  Sex: Male
  Weight: 77.6 kg

DRUGS (1)
  1. FABRAZYME [Suspect]
     Indication: FABRY'S DISEASE
     Dosage: UNK
     Route: 042

REACTIONS (2)
  - ROAD TRAFFIC ACCIDENT [None]
  - SKULL FRACTURE [None]
